FAERS Safety Report 13258828 (Version 1)
Quarter: 2017Q1

REPORT INFORMATION
  Report Type: Spontaneous
  Country: US (occurrence: US)
  Receive Date: 20170220
  Receipt Date: 20170220
  Transmission Date: 20170428
  Serious: Yes (Death)
  Sender: FDA-Public Use
  Company Number: None

PATIENT
  Age: 48 Year
  Sex: Male

DRUGS (14)
  1. ZOLPIDEM [Concomitant]
     Active Substance: ZOLPIDEM\ZOLPIDEM TARTRATE
  2. DEXAMETHASONE. [Concomitant]
     Active Substance: DEXAMETHASONE
  3. GLEOSTINE [Suspect]
     Active Substance: LOMUSTINE
     Indication: BRAIN NEOPLASM
     Dosage: 3 CAPS QDAY ON DAYS 8-21 ORAL
     Route: 048
     Dates: start: 201611, end: 201702
  4. HYDROXYTINE [Concomitant]
  5. LIOTHYRONINE [Concomitant]
     Active Substance: LIOTHYRONINE
  6. MATULANE [Concomitant]
     Active Substance: PROCARBAZINE HYDROCHLORIDE
  7. TESTOSTERONE. [Concomitant]
     Active Substance: TESTOSTERONE
  8. SYNTHROID [Concomitant]
     Active Substance: LEVOTHYROXINE SODIUM
  9. GLEOSTINE [Suspect]
     Active Substance: LOMUSTINE
  10. FAMOTIDINE. [Concomitant]
     Active Substance: FAMOTIDINE
  11. LORAZEPAM. [Concomitant]
     Active Substance: LORAZEPAM
  12. LAMOTRIGINE. [Concomitant]
     Active Substance: LAMOTRIGINE
  13. LISINOPRIL. [Concomitant]
     Active Substance: LISINOPRIL
  14. VENLAFAXINE [Concomitant]
     Active Substance: VENLAFAXINE HYDROCHLORIDE

REACTIONS (1)
  - Death [None]

NARRATIVE: CASE EVENT DATE: 201702
